FAERS Safety Report 7665157-8 (Version None)
Quarter: 2011Q3

REPORT INFORMATION
  Report Type: 
  Country: None (occurrence: None)
  Receive Date: 20110806
  Receipt Date: 20110614
  Transmission Date: 20111222
  Serious: No
  Sender: FDA-Public Use
  Company Number: US-ABBOTT-11P-163-0732561-00

PATIENT
  Sex: Female
  Weight: 74.002 kg

DRUGS (11)
  1. DICLOFENAC SODIUM [Concomitant]
     Indication: ARTHRITIS
  2. PREMPRO [Concomitant]
     Indication: HORMONE REPLACEMENT THERAPY
  3. LEVOTHYROXINE SODIUM [Concomitant]
     Indication: THYROID OPERATION
  4. NIASPAN [Suspect]
     Indication: BLOOD CHOLESTEROL INCREASED
     Route: 048
     Dates: start: 20110509, end: 20110520
  5. LEVOTHYROXINE SODIUM [Concomitant]
     Indication: GOITRE
  6. NIASPAN [Suspect]
     Route: 048
     Dates: start: 20110521, end: 20110605
  7. NAPROXEN [Concomitant]
     Indication: INTERVERTEBRAL DISC DEGENERATION
  8. NIASPAN [Suspect]
     Route: 048
     Dates: start: 20110606
  9. NAPROXEN [Concomitant]
     Indication: ARTHRITIS
  10. DICLOFENAC SODIUM [Concomitant]
     Indication: INTERVERTEBRAL DISC DEGENERATION
  11. FLEXERIL [Concomitant]
     Indication: MUSCLE SPASMS

REACTIONS (4)
  - ERYTHEMA [None]
  - BURNING SENSATION [None]
  - PARAESTHESIA [None]
  - HOT FLUSH [None]
